FAERS Safety Report 14401233 (Version 2)
Quarter: 2018Q1

REPORT INFORMATION
  Report Type: Spontaneous
  Country: US (occurrence: US)
  Receive Date: 20180117
  Receipt Date: 20180214
  Transmission Date: 20180509
  Serious: No
  Sender: FDA-Public Use
  Company Number: US-PFIZER INC-2018022712

PATIENT
  Age: 75 Year
  Sex: Female

DRUGS (4)
  1. LYRICA [Suspect]
     Active Substance: PREGABALIN
     Indication: FIBROMYALGIA
     Dosage: 25 MG, 3X/DAY; [ONE (25 MG) IN THE MORNING AND TWO (25 MG) AT NIGHT ]
     Dates: start: 2017, end: 201712
  2. LYRICA [Suspect]
     Active Substance: PREGABALIN
     Dosage: 50 MG, 2X/DAY; [50 MG IN THE MORNING AND 50 MG AT NIGHT]
     Route: 048
     Dates: start: 20180129
  3. LYRICA [Suspect]
     Active Substance: PREGABALIN
     Dosage: 55 MG, 2X/DAY; [IN THE MORNING AND AT NIGHT]
  4. LEVOTHYROXINE. [Concomitant]
     Active Substance: LEVOTHYROXINE
     Indication: HYPOTHYROIDISM
     Dosage: 0.125 UG, UNK ; [ONCE]

REACTIONS (8)
  - Nervousness [Recovered/Resolved]
  - Influenza [Recovering/Resolving]
  - Pain [Unknown]
  - Dry mouth [Recovering/Resolving]
  - Amnesia [Unknown]
  - Coordination abnormal [Unknown]
  - Dizziness [Recovered/Resolved]
  - Asthenia [Unknown]

NARRATIVE: CASE EVENT DATE: 2018
